FAERS Safety Report 15926848 (Version 1)
Quarter: 2019Q1

REPORT INFORMATION
  Report Type: Spontaneous
  Country: NL (occurrence: NL)
  Receive Date: 20190206
  Receipt Date: 20190206
  Transmission Date: 20190417
  Serious: Yes (Hospitalization)
  Sender: FDA-Public Use
  Company Number: NL-ROCHE-2253653

PATIENT
  Age: 70 Year
  Sex: Female

DRUGS (7)
  1. METHOTREXATE. [Concomitant]
     Active Substance: METHOTREXATE
  2. PREDNISOLON [Concomitant]
     Active Substance: PREDNISOLONE
  3. ALVESCO [Concomitant]
     Active Substance: CICLESONIDE
  4. ESBRIET [Suspect]
     Active Substance: PIRFENIDONE
     Indication: GRAFT VERSUS HOST DISEASE IN LUNG
     Route: 065
     Dates: start: 20181205
  5. MONTELUKAST [Concomitant]
     Active Substance: MONTELUKAST SODIUM
  6. FLUTICASON [Concomitant]
     Active Substance: FLUTICASONE
  7. AZITROMYCINE [Concomitant]
     Active Substance: AZITHROMYCIN

REACTIONS (3)
  - Intentional product use issue [Unknown]
  - Pneumonia [Unknown]
  - Off label use [Unknown]

NARRATIVE: CASE EVENT DATE: 20181205
